FAERS Safety Report 13105352 (Version 2)
Quarter: 2017Q1

REPORT INFORMATION
  Report Type: Spontaneous
  Country: US (occurrence: US)
  Receive Date: 20170111
  Receipt Date: 20170207
  Transmission Date: 20170428
  Serious: No
  Sender: FDA-Public Use
  Company Number: US-PFIZER INC-2017009672

PATIENT
  Age: 70 Year
  Sex: Female

DRUGS (2)
  1. LYRICA [Suspect]
     Active Substance: PREGABALIN
     Dosage: UNK, 1X/DAY
  2. LYRICA [Suspect]
     Active Substance: PREGABALIN
     Indication: DIABETIC NEUROPATHY
     Dosage: UNK, 3X/DAY

REACTIONS (8)
  - Hypersensitivity [Unknown]
  - Tympanic membrane perforation [Unknown]
  - Malaise [Unknown]
  - Scab [Unknown]
  - Cough [Unknown]
  - Ear haemorrhage [Unknown]
  - Drug effect incomplete [Unknown]
  - Diarrhoea [Recovered/Resolved]
